FAERS Safety Report 25118079 (Version 2)
Quarter: 2025Q2

REPORT INFORMATION
  Report Type: Spontaneous
  Country: BR (occurrence: BR)
  Receive Date: 20250325
  Receipt Date: 20250407
  Transmission Date: 20250716
  Serious: Yes (Other)
  Sender: SANDOZ
  Company Number: BR-SANDOZ-SDZ2023BR047838

PATIENT
  Age: 32 Year
  Sex: Female

DRUGS (4)
  1. ATENOLOL [Suspect]
     Active Substance: ATENOLOL
     Indication: Product used for unknown indication
     Route: 065
  2. ENOXAPARIN [Suspect]
     Active Substance: ENOXAPARIN
     Indication: Product used for unknown indication
     Route: 065
  3. APIXABAN [Suspect]
     Active Substance: APIXABAN
     Indication: Product used for unknown indication
     Route: 065
  4. UNSPECIFIED INGREDIENT [Concomitant]
     Active Substance: UNSPECIFIED INGREDIENT
     Indication: Coagulopathy
     Route: 065

REACTIONS (3)
  - Arrested labour [Unknown]
  - Procedural haemorrhage [Unknown]
  - Exposure during pregnancy [Unknown]
